FAERS Safety Report 4551296-7 (Version None)
Quarter: 2005Q1

REPORT INFORMATION
  Report Type: 
  Country: None (occurrence: None)
  Receive Date: 20050110
  Receipt Date: 20050105
  Transmission Date: 20050727
  Serious: Yes (Other)
  Sender: FDA-Public Use
  Company Number: HQWYE778207DEC04

PATIENT
  Age: 37 Year
  Sex: Female

DRUGS (6)
  1. INIPOMP (PANTOPRAZOLE, TABLET, DELAYED RELEASE) [Suspect]
     Indication: COLITIS
     Dosage: 40 MG 1X PER 1 DAY
     Route: 048
     Dates: start: 20041030, end: 20041031
  2. INIPOMP (PANTOPRAZOLE, TABLET, DELAYED RELEASE) [Suspect]
     Indication: GASTROENTERITIS
     Dosage: 40 MG 1X PER 1 DAY
     Route: 048
     Dates: start: 20041030, end: 20041031
  3. PHLOROGLUCINOL (PHLOROGLUCINOL) [Concomitant]
  4. SMECTITE (SMECTITE) [Concomitant]
  5. SACCHARIN SODIUIM (SACCHARIN SODIUM) [Concomitant]
  6. MONEVA (ETHINYLESTRADIOL/GESTODENE) [Concomitant]

REACTIONS (1)
  - TOXIC SKIN ERUPTION [None]
